FAERS Safety Report 11931742 (Version 2)
Quarter: 2016Q1

REPORT INFORMATION
  Report Type: Report from Study
  Country: IT (occurrence: IT)
  Receive Date: 20160120
  Receipt Date: 20160209
  Transmission Date: 20160526
  Serious: Yes (Death, Hospitalization)
  Sender: FDA-Public Use
  Company Number: IT-JNJFOC-20160112494

PATIENT
  Age: 48 Year
  Sex: Male
  Weight: 82 kg

DRUGS (9)
  1. PANTOPRAZOLE [Concomitant]
     Active Substance: PANTOPRAZOLE SODIUM
     Indication: PROPHYLAXIS AGAINST GASTROINTESTINAL ULCER
     Route: 048
     Dates: start: 201509
  2. TRABECTEDIN [Suspect]
     Active Substance: TRABECTEDIN
     Indication: PLEURAL MESOTHELIOMA MALIGNANT
     Dosage: LAST ADMINISTERED CYCLE 4
     Route: 042
     Dates: start: 20151008, end: 20151217
  3. DELTACORTENE [Concomitant]
     Active Substance: PREDNISONE
     Indication: NEOPLASM MALIGNANT
     Route: 048
     Dates: start: 201509
  4. TRABECTEDIN [Suspect]
     Active Substance: TRABECTEDIN
     Route: 042
  5. TORASEMIDE [Concomitant]
     Active Substance: TORSEMIDE
     Indication: SUPPORTIVE CARE
     Route: 048
     Dates: start: 201509
  6. CLEXANE [Concomitant]
     Active Substance: ENOXAPARIN SODIUM
     Indication: THROMBOSIS PROPHYLAXIS
     Route: 058
  7. LACTULOSE. [Concomitant]
     Active Substance: LACTULOSE
     Indication: ASTRINGENT THERAPY
     Route: 048
     Dates: start: 201512
  8. TARGIN [Concomitant]
     Active Substance: NALOXONE HYDROCHLORIDE\OXYCODONE HYDROCHLORIDE
     Indication: PAIN
     Route: 048
     Dates: start: 201509
  9. ORAMORPH [Concomitant]
     Active Substance: MORPHINE SULFATE
     Indication: PAIN
     Route: 048
     Dates: start: 201512

REACTIONS (5)
  - Cardiac disorder [Fatal]
  - Pulmonary oedema [Not Recovered/Not Resolved]
  - Pulmonary embolism [Fatal]
  - Stomatitis [Not Recovered/Not Resolved]
  - Pain [Not Recovered/Not Resolved]

NARRATIVE: CASE EVENT DATE: 20151230
